FAERS Safety Report 11437906 (Version 2)
Quarter: 2018Q1

REPORT INFORMATION
  Report Type: Spontaneous
  Country: CA (occurrence: CA)
  Receive Date: 20150831
  Receipt Date: 20180310
  Transmission Date: 20180508
  Serious: Yes (Other)
  Sender: FDA-Public Use
  Company Number: CA-BRISTOL-MYERS SQUIBB COMPANY-BMS-2015-056744

PATIENT
  Age: 73 Year
  Sex: Female

DRUGS (9)
  1. AZATHIOPRINE. [Suspect]
     Active Substance: AZATHIOPRINE
     Indication: RHEUMATOID ARTHRITIS
     Route: 065
  2. LEFLUNOMIDE. [Suspect]
     Active Substance: LEFLUNOMIDE
     Indication: RHEUMATOID ARTHRITIS
     Route: 065
  3. ORENCIA [Suspect]
     Active Substance: ABATACEPT
     Indication: RHEUMATOID ARTHRITIS
     Dosage: UNK
     Route: 065
     Dates: start: 201412, end: 201505
  4. SALICYLATES NOS [Suspect]
     Active Substance: UNSPECIFIED INGREDIENT
     Indication: RHEUMATOID ARTHRITIS
     Route: 065
  5. SULFASALAZINE. [Suspect]
     Active Substance: SULFASALAZINE
     Indication: RHEUMATOID ARTHRITIS
     Route: 065
  6. HUMIRA [Suspect]
     Active Substance: ADALIMUMAB
     Indication: RHEUMATOID ARTHRITIS
     Route: 065
  7. HYDROXYCHLOROQUINE SULFATE. [Suspect]
     Active Substance: HYDROXYCHLOROQUINE SULFATE
     Indication: RHEUMATOID ARTHRITIS
     Route: 065
  8. ENBREL [Suspect]
     Active Substance: ETANERCEPT
     Indication: RHEUMATOID ARTHRITIS
     Route: 065
  9. METHOTREXATE SODIUM. [Suspect]
     Active Substance: METHOTREXATE SODIUM
     Indication: RHEUMATOID ARTHRITIS
     Route: 065

REACTIONS (17)
  - Urosepsis [Unknown]
  - Asthma [Unknown]
  - Urinary tract infection [Unknown]
  - Septic shock [Unknown]
  - Injection site inflammation [Unknown]
  - Musculoskeletal stiffness [Unknown]
  - Pain [Unknown]
  - Back pain [Unknown]
  - Injection site pruritus [Unknown]
  - Rheumatoid arthritis [Unknown]
  - Loss of personal independence in daily activities [Unknown]
  - Hypertension [Unknown]
  - Drug ineffective [Unknown]
  - Synovitis [Unknown]
  - Dyspepsia [Unknown]
  - Contraindicated product administered [Unknown]
  - Angioedema [Unknown]

NARRATIVE: CASE EVENT DATE: 20150612
